FAERS Safety Report 10607402 (Version 1)
Quarter: 2014Q4

REPORT INFORMATION
  Report Type: Spontaneous
  Country: US (occurrence: US)
  Receive Date: 20141125
  Receipt Date: 20141125
  Transmission Date: 20150529
  Serious: Yes (Other)
  Sender: FDA-Public Use
  Company Number: US-SA-2014SA159818

PATIENT
  Age: 67 Year
  Sex: Female

DRUGS (1)
  1. LANTUS SOLOSTAR [Suspect]
     Active Substance: INSULIN GLARGINE
     Indication: TYPE 2 DIABETES MELLITUS
     Dosage: THERAPY START DATE } 7 YEARS DOSE:60 UNIT(S)
     Route: 065

REACTIONS (3)
  - Cataract [Not Recovered/Not Resolved]
  - Eye haemorrhage [Unknown]
  - Eye disorder [Unknown]
